FAERS Safety Report 24802816 (Version 1)
Quarter: 2025Q1

REPORT INFORMATION
  Report Type: Report from Study
  Country: CA (occurrence: CA)
  Receive Date: 20250103
  Receipt Date: 20250103
  Transmission Date: 20250408
  Serious: Yes (Other)
  Sender: CELLTRION
  Company Number: CA-CELLTRION INC.-2024CA032870

PATIENT

DRUGS (4)
  1. INFLIXIMAB-DYYB [Suspect]
     Active Substance: INFLIXIMAB-DYYB
     Indication: Rheumatoid arthritis
     Dosage: MAINTENANCE - 120 MG - SC (SUBCUTANEOUS) EVERY 14 DAYS
     Route: 058
     Dates: start: 20230618, end: 20240114
  2. TYLENOL [Concomitant]
     Active Substance: ACETAMINOPHEN
  3. TRAMADOL [Concomitant]
     Active Substance: TRAMADOL
  4. CORTICOSTEROID NOS [Concomitant]
     Active Substance: CORTICOSTEROID NOS

REACTIONS (2)
  - Neoplasm malignant [Unknown]
  - Vascular stent occlusion [Unknown]
